FAERS Safety Report 11302402 (Version 1)
Quarter: 2015Q3

REPORT INFORMATION
  Report Type: Spontaneous
  Country: US (occurrence: None)
  Receive Date: 20150723
  Receipt Date: 20150723
  Transmission Date: 20151125
  Serious: Yes (Hospitalization)
  Sender: FDA-Public Use
  Company Number: None

PATIENT
  Age: 59 Year
  Sex: Female
  Weight: 81.65 kg

DRUGS (5)
  1. PROZAC [Concomitant]
     Active Substance: FLUOXETINE HYDROCHLORIDE
  2. VALIUM [Concomitant]
     Active Substance: DIAZEPAM
  3. D-3 [Concomitant]
     Active Substance: CHOLECALCIFEROL
  4. AMBIEN [Suspect]
     Active Substance: ZOLPIDEM TARTRATE
     Indication: INSOMNIA
     Route: 048
     Dates: start: 20150717
  5. VITAMIN B12 [Concomitant]
     Active Substance: CYANOCOBALAMIN

REACTIONS (5)
  - Suicidal ideation [None]
  - Aphasia [None]
  - Abasia [None]
  - Dysstasia [None]
  - Muscular weakness [None]

NARRATIVE: CASE EVENT DATE: 20150717
